FAERS Safety Report 4788884-9 (Version None)
Quarter: 2005Q4

REPORT INFORMATION
  Report Type: 
  Country: None (occurrence: None)
  Receive Date: 20051004
  Receipt Date: 20050921
  Transmission Date: 20060501
  Serious: Yes (Life-Threatening)
  Sender: FDA-Public Use
  Company Number: S05-SWI-03565-01

PATIENT
  Age: 59 Year
  Sex: Female

DRUGS (6)
  1. CITALOPRAM HYDROBROMIDE [Suspect]
     Dosage: 600 MG QD PO
     Route: 048
  2. LITHIUM [Suspect]
  3. TRAZODONE HCL [Suspect]
     Dosage: 200 MG QD PO
     Route: 048
  4. SURMONTIL [Suspect]
     Dosage: 150 MG QD PO
     Route: 048
  5. RITALIN [Suspect]
  6. VASERETIC [Concomitant]

REACTIONS (2)
  - ATRIOVENTRICULAR BLOCK COMPLETE [None]
  - OVERDOSE [None]
